FAERS Safety Report 7970704 (Version 3)
Quarter: 2013Q4

REPORT INFORMATION
  Report Type: Spontaneous
  Country: US (occurrence: US)
  Receive Date: 20110602
  Receipt Date: 20131226
  Transmission Date: 20140711
  Serious: Yes (Life-Threatening, Hospitalization, Other)
  Sender: FDA-Public Use
  Company Number: US-BAYER-2011-047017

PATIENT
  Age: 21 Year
  Sex: Female
  Weight: 57.14 kg

DRUGS (10)
  1. YASMIN [Suspect]
     Indication: CONTRACEPTION
     Dosage: UNK
     Route: 048
     Dates: start: 2005, end: 2010
  2. YASMIN [Suspect]
     Indication: ACNE
     Dosage: UNK
     Route: 048
     Dates: start: 2005, end: 2010
  3. YASMIN [Suspect]
     Indication: CONTRACEPTION
     Dosage: UNK
     Route: 048
     Dates: start: 2005, end: 2010
  4. YASMIN [Suspect]
     Indication: CONTRACEPTION
     Dosage: UNK
     Route: 048
     Dates: start: 2005, end: 2010
  5. OCELLA [Suspect]
     Indication: CONTRACEPTION
     Dosage: UNK
     Route: 048
     Dates: start: 2005, end: 2010
  6. OCELLA [Suspect]
     Indication: ACNE
     Dosage: UNK
     Route: 048
     Dates: start: 2005, end: 2010
  7. OCELLA [Suspect]
     Indication: CONTRACEPTION
     Dosage: UNK
     Route: 048
     Dates: start: 2005, end: 2010
  8. OCELLA [Suspect]
     Indication: CONTRACEPTION
     Dosage: UNK
     Route: 048
     Dates: start: 2005, end: 2010
  9. METRONIDAZOLE [Concomitant]
     Dosage: 500 MG, UNK
  10. PRILOSEC [Concomitant]

REACTIONS (10)
  - Gallbladder non-functioning [None]
  - Cholecystitis chronic [None]
  - Internal injury [None]
  - Organ failure [None]
  - Injury [None]
  - Pain [None]
  - Anxiety [None]
  - Anhedonia [None]
  - General physical health deterioration [None]
  - Pain [None]
